FAERS Safety Report 21990061 (Version 1)
Quarter: 2023Q1

REPORT INFORMATION
  Report Type: Spontaneous
  Country: RO (occurrence: RO)
  Receive Date: 20230214
  Receipt Date: 20230214
  Transmission Date: 20230417
  Serious: Yes (Other)
  Sender: FDA-Public Use
  Company Number: RO-SA-2023SA048827

PATIENT
  Age: 37 Year
  Sex: Male

DRUGS (3)
  1. ENOXAPARIN SODIUM [Suspect]
     Active Substance: ENOXAPARIN SODIUM
     Indication: Prophylaxis
     Dosage: 80 MG, BID
  2. HEPARIN [Suspect]
     Active Substance: HEPARIN SODIUM
     Indication: Prophylaxis
     Dosage: UNK (2 HOURS)
     Route: 042
  3. WARFARIN SODIUM [Suspect]
     Active Substance: WARFARIN SODIUM
     Indication: Prophylaxis
     Dosage: UNK

REACTIONS (14)
  - Portal vein thrombosis [Unknown]
  - Shock [Unknown]
  - Malaise [Unknown]
  - Tachycardia [Unknown]
  - Pyrexia [Unknown]
  - Cold sweat [Unknown]
  - Abdominal pain [Unknown]
  - Tenderness [Unknown]
  - Nausea [Unknown]
  - Vomiting [Unknown]
  - Hypoperfusion [Unknown]
  - Mesenteric vein thrombosis [Unknown]
  - Splenic vein thrombosis [Unknown]
  - Ascites [Unknown]
